FAERS Safety Report 16594372 (Version 1)
Quarter: 2019Q3

REPORT INFORMATION
  Report Type: Other
  Country: US (occurrence: US)
  Receive Date: 20190718
  Receipt Date: 20190718
  Transmission Date: 20191004
  Serious: No
  Sender: FDA-Public Use
  Company Number: US-SWEDISH ORPHAN BIOVITRUM-2019US0051

PATIENT
  Age: 47 Year
  Sex: Female

DRUGS (5)
  1. PREDNISONE 20MG [Concomitant]
     Active Substance: PREDNISONE
  2. LORAZEPAM. [Concomitant]
     Active Substance: LORAZEPAM
  3. KINERET [Suspect]
     Active Substance: ANAKINRA
     Route: 058
     Dates: start: 20181122
  4. ALBUTEROL. [Concomitant]
     Active Substance: ALBUTEROL
  5. IBUPROFEN. [Concomitant]
     Active Substance: IBUPROFEN

REACTIONS (3)
  - Injection site pain [Unknown]
  - Injection site urticaria [Unknown]
  - Injection site pruritus [Unknown]

NARRATIVE: CASE EVENT DATE: 201811
